FAERS Safety Report 4951175-7 (Version None)
Quarter: 2006Q1

REPORT INFORMATION
  Report Type: 
  Country: None (occurrence: None)
  Receive Date: 20060315
  Receipt Date: 20060228
  Transmission Date: 20060701
  Serious: No
  Sender: FDA-Public Use
  Company Number: GB200601004925

PATIENT
  Age: 60 Year
  Sex: Female

DRUGS (2)
  1. CYMBALTA [Suspect]
     Dosage: 30 MG
     Dates: start: 20051001, end: 20051201
  2. PAROXETINE HCL [Concomitant]

REACTIONS (3)
  - ANXIETY [None]
  - HYPERTENSION [None]
  - TREMOR [None]
